FAERS Safety Report 12520652 (Version 1)
Quarter: 2016Q2

REPORT INFORMATION
  Report Type: Spontaneous
  Country: US (occurrence: None)
  Receive Date: 20160630
  Receipt Date: 20160630
  Transmission Date: 20160815
  Serious: No
  Sender: FDA-Public Use
  Company Number: None

PATIENT
  Age: 30 Year
  Sex: Female

DRUGS (11)
  1. CALCIUM [Concomitant]
     Active Substance: CALCIUM
  2. MULTI VIT [Concomitant]
  3. IBRANCE [Suspect]
     Active Substance: PALBOCICLIB
     Indication: BREAST CANCER
     Dosage: 125MG 21 DAYS ON 7 OFF  QD PO
     Route: 048
     Dates: start: 20160506
  4. VOLTAREN [Concomitant]
     Active Substance: DICLOFENAC SODIUM
  5. TRAMADOL. [Concomitant]
     Active Substance: TRAMADOL
  6. XGEVA [Concomitant]
     Active Substance: DENOSUMAB
  7. VITAMIN D [Concomitant]
     Active Substance: CHOLECALCIFEROL
  8. BIOTIN [Concomitant]
     Active Substance: BIOTIN
  9. FASLODEX [Concomitant]
     Active Substance: FULVESTRANT
  10. LIDOCAINE. [Concomitant]
     Active Substance: LIDOCAINE
  11. LUPRON DEPOT [Concomitant]
     Active Substance: LEUPROLIDE ACETATE

REACTIONS (2)
  - Drug dose omission [None]
  - Memory impairment [None]

NARRATIVE: CASE EVENT DATE: 201606
